FAERS Safety Report 5191391-5 (Version None)
Quarter: 2006Q4

REPORT INFORMATION
  Report Type: 
  Country: None (occurrence: None)
  Receive Date: 20061226
  Receipt Date: 20060518
  Transmission Date: 20070319
  Serious: Yes (Hospitalization)
  Sender: FDA-Public Use
  Company Number: FR-MERCK-0605USA04101

PATIENT
  Age: 75 Year
  Sex: Female

DRUGS (5)
  1. MODURETIC 5-50 [Suspect]
     Route: 048
     Dates: end: 20060312
  2. ENALAPRIL MALEATE [Suspect]
     Route: 048
     Dates: start: 20060310, end: 20060312
  3. CEBUTID [Concomitant]
     Route: 065
     Dates: start: 20060303, end: 20060307
  4. IKOREL [Concomitant]
     Route: 065
  5. [THERAPY UNSPECIFIED] [Concomitant]
     Route: 065

REACTIONS (3)
  - HAEMATOMA [None]
  - HYPERKALAEMIA [None]
  - RENAL FAILURE ACUTE [None]
